FAERS Safety Report 7500660-2 (Version None)
Quarter: 2011Q2

REPORT INFORMATION
  Report Type: 
  Country: None (occurrence: None)
  Receive Date: 20110524
  Receipt Date: 20110519
  Transmission Date: 20111010
  Serious: Yes (Hospitalization)
  Sender: FDA-Public Use
  Company Number: US-MERCK-1105USA01670

PATIENT
  Age: 71 Year
  Sex: Female

DRUGS (4)
  1. COZAAR [Suspect]
     Dosage: ONE HALF OF A 100 MG TABLET ONCE DAILY.
     Route: 048
     Dates: start: 20040501
  2. HYDRALAZINE [Concomitant]
     Route: 065
  3. GABAPENTIN [Concomitant]
     Route: 065
  4. LEXAPRO [Concomitant]
     Route: 065

REACTIONS (5)
  - CARPAL TUNNEL SYNDROME [None]
  - GASTRIC DISORDER [None]
  - COELIAC DISEASE [None]
  - WEIGHT DECREASED [None]
  - WRONG TECHNIQUE IN DRUG USAGE PROCESS [None]
